FAERS Safety Report 8135674-5 (Version None)
Quarter: 2012Q1

REPORT INFORMATION
  Report Type: 
  Country: None (occurrence: None)
  Receive Date: 20120214
  Receipt Date: 20120203
  Transmission Date: 20120608
  Serious: Yes (Hospitalization)
  Sender: FDA-Public Use
  Company Number: IT-TEVA-322012ISR

PATIENT
  Sex: Male

DRUGS (11)
  1. BENDAMUSTINE HCL [Suspect]
  2. MINIAS [Concomitant]
     Dates: start: 20110630
  3. DURAGESIC-100 [Concomitant]
     Dates: start: 20110630
  4. ENOXAPARIN SODIUM [Concomitant]
     Dates: start: 20110630
  5. ARMODAFINIL [Concomitant]
     Dates: start: 20110630
  6. ESCITALOPRAM [Concomitant]
     Dates: start: 20110630
  7. TALAVIR [Concomitant]
     Dates: start: 20110630
  8. CASODEX [Concomitant]
     Dates: start: 20110209
  9. BACTRIM [Concomitant]
     Dates: start: 20110630
  10. FOLIC ACID [Concomitant]
     Dates: start: 20110630
  11. PANTOPRAZOLE SODIUM [Concomitant]
     Dates: start: 20110630

REACTIONS (2)
  - APHASIA [None]
  - CENTRAL NERVOUS SYSTEM LESION [None]
